FAERS Safety Report 24371569 (Version 3)
Quarter: 2024Q4

REPORT INFORMATION
  Report Type: Spontaneous
  Country: FR (occurrence: FR)
  Receive Date: 20240927
  Receipt Date: 20241007
  Transmission Date: 20250115
  Serious: Yes (Life-Threatening)
  Sender: MYLAN
  Company Number: None

PATIENT
  Age: 10 Year
  Sex: Female
  Weight: 28 kg

DRUGS (30)
  1. METHYLPREDNISOLONE [Suspect]
     Active Substance: METHYLPREDNISOLONE
     Indication: Prophylaxis against transplant rejection
     Dosage: UNK
     Route: 042
     Dates: start: 20240607, end: 20240617
  2. CEFAZOLIN SODIUM [Suspect]
     Active Substance: CEFAZOLIN SODIUM
     Indication: Antibiotic prophylaxis
     Dosage: UNK
     Route: 042
     Dates: start: 20240607, end: 20240613
  3. SUFENTANIL [Suspect]
     Active Substance: SUFENTANIL
     Indication: Analgesic therapy
     Dosage: UNK
     Route: 042
     Dates: start: 20240607, end: 20240620
  4. SUFENTANIL [Suspect]
     Active Substance: SUFENTANIL
     Dosage: UNK
     Route: 042
     Dates: start: 20240701, end: 20240706
  5. AMIKACIN [Suspect]
     Active Substance: AMIKACIN
     Indication: Septic shock
     Dosage: UNK
     Route: 065
     Dates: start: 20240612, end: 20240612
  6. DEXMEDETOMIDINE HYDROCHLORIDE [Suspect]
     Active Substance: DEXMEDETOMIDINE HYDROCHLORIDE
     Indication: Sedative therapy
     Dosage: UNK,(DILUTABLE SOLUTION FOR INFUSION)
     Route: 042
     Dates: start: 20240607
  7. PIPERACILLIN SODIUM\TAZOBACTAM SODIUM [Suspect]
     Active Substance: PIPERACILLIN SODIUM\TAZOBACTAM SODIUM
     Indication: Pseudomonas infection
     Dosage: UNK
     Route: 042
     Dates: start: 20240612, end: 20240612
  8. PIPERACILLIN SODIUM\TAZOBACTAM SODIUM [Suspect]
     Active Substance: PIPERACILLIN SODIUM\TAZOBACTAM SODIUM
     Dosage: UNK
     Route: 042
     Dates: start: 20240622, end: 20240717
  9. CEFTAZIDIME [Suspect]
     Active Substance: CEFTAZIDIME
     Indication: Pseudomonas infection
     Dosage: UNK
     Route: 042
     Dates: start: 20240613, end: 20240621
  10. ACETAMINOPHEN [Suspect]
     Active Substance: ACETAMINOPHEN
     Indication: Analgesic therapy
     Dosage: UNK
     Route: 048
     Dates: start: 20240617
  11. MIDAZOLAM [Suspect]
     Active Substance: MIDAZOLAM
     Indication: Sedative therapy
     Dosage: UNK
     Route: 042
     Dates: start: 20240607
  12. MIDAZOLAM [Suspect]
     Active Substance: MIDAZOLAM
     Indication: Sedation
  13. NOREPINEPHRINE [Suspect]
     Active Substance: NOREPINEPHRINE\NOREPINEPHRINE BITARTRATE
     Indication: Vasopressive therapy
     Dosage: UNK
     Route: 042
     Dates: start: 20240607, end: 20240612
  14. NOREPINEPHRINE [Suspect]
     Active Substance: NOREPINEPHRINE\NOREPINEPHRINE BITARTRATE
     Dosage: UNK
     Route: 042
     Dates: start: 20240628, end: 20240707
  15. AMBISOME [Suspect]
     Active Substance: AMPHOTERICIN B
     Indication: Antifungal prophylaxis
     Dosage: 50 MILLIGRAM
     Route: 055
     Dates: start: 20240608
  16. CELLCEPT [Suspect]
     Active Substance: MYCOPHENOLATE MOFETIL
     Indication: Prophylaxis against transplant rejection
     Dosage: UNK
     Route: 048
     Dates: start: 20240607
  17. CELLCEPT [Suspect]
     Active Substance: MYCOPHENOLATE MOFETIL
     Indication: Prophylaxis against transplant rejection
  18. EPINEPHRINE [Suspect]
     Active Substance: EPINEPHRINE
     Indication: Vasopressive therapy
     Dosage: UNK
     Route: 042
     Dates: start: 20240607, end: 20240621
  19. BACTRIM [Suspect]
     Active Substance: SULFAMETHOXAZOLE\TRIMETHOPRIM
     Indication: Antifungal prophylaxis
     Dosage: UNK (STRENGTH 40/8 MILLIGRAM PER MILLILITRE)
     Route: 048
     Dates: start: 20240611
  20. NICARDIPINE [Suspect]
     Active Substance: NICARDIPINE
     Indication: Hypertension
     Dosage: UNK
     Route: 042
     Dates: start: 20240609, end: 20240616
  21. TACROLIMUS [Suspect]
     Active Substance: TACROLIMUS
     Indication: Prophylaxis against transplant rejection
     Dosage: UNK
     Route: 048
     Dates: start: 20240607
  22. TACROLIMUS [Suspect]
     Active Substance: TACROLIMUS
     Indication: Prophylaxis against transplant rejection
  23. PANTOPRAZOLE SODIUM [Suspect]
     Active Substance: PANTOPRAZOLE SODIUM
     Indication: Prophylaxis against gastrointestinal ulcer
     Dosage: 40 MILLIGRAM
     Route: 042
     Dates: start: 20240617
  24. GANCICLOVIR SODIUM [Suspect]
     Active Substance: GANCICLOVIR SODIUM
     Indication: Antiviral prophylaxis
     Dosage: 500 MILLIGRAM
     Route: 042
     Dates: start: 20240608, end: 20240617
  25. FUROSEMIDE [Suspect]
     Active Substance: FUROSEMIDE
     Indication: Fluid retention
     Dosage: UNK
     Route: 042
     Dates: start: 20240612
  26. FUROSEMIDE [Suspect]
     Active Substance: FUROSEMIDE
     Indication: Fluid retention
  27. FUNGIZONE [Suspect]
     Active Substance: AMPHOTERICIN B
     Indication: Antifungal prophylaxis
     Dosage: UNK
     Route: 048
     Dates: start: 20240608
  28. VALGANCICLOVIR HYDROCHLORIDE [Suspect]
     Active Substance: VALGANCICLOVIR HYDROCHLORIDE
     Indication: Antiviral prophylaxis
     Dosage: UNK (STRENGTH 50 MILLIGRAM PER MILLILITRE)
     Route: 042
     Dates: start: 20240617
  29. NYSTATIN [Suspect]
     Active Substance: NYSTATIN
     Indication: Antifungal prophylaxis
     Dosage: UNK
     Route: 048
     Dates: start: 20240617, end: 20240710
  30. HEPARIN SODIUM [Suspect]
     Active Substance: HEPARIN SODIUM
     Indication: Thrombosis prophylaxis
     Dosage: (5000 UI/0.2 ML)
     Route: 058
     Dates: start: 20240616, end: 20240619

REACTIONS (1)
  - Myocardial calcification [Recovering/Resolving]

NARRATIVE: CASE EVENT DATE: 20240722
